FAERS Safety Report 4317137-8 (Version None)
Quarter: 2004Q1

REPORT INFORMATION
  Report Type: 
  Country: None (occurrence: None)
  Receive Date: 20040312
  Receipt Date: 20040303
  Transmission Date: 20041129
  Serious: Yes (Hospitalization)
  Sender: FDA-Public Use
  Company Number: 2004CG00447

PATIENT
  Age: 60 Year
  Sex: Female

DRUGS (1)
  1. NOLVADEX [Suspect]
     Indication: BREAST CANCER

REACTIONS (2)
  - HEPATIC CIRRHOSIS [None]
  - HYPERTRIGLYCERIDAEMIA [None]
